FAERS Safety Report 8226466-7 (Version None)
Quarter: 2012Q1

REPORT INFORMATION
  Report Type: 
  Country: None (occurrence: None)
  Receive Date: 20120322
  Receipt Date: 20120309
  Transmission Date: 20120608
  Serious: Yes (Life-Threatening)
  Sender: FDA-Public Use
  Company Number: IT-RANBAXY-2012R1-53830

PATIENT
  Sex: Male

DRUGS (1)
  1. AMOXICILLIN [Suspect]
     Indication: PRODUCT USED FOR UNKNOWN INDICATION
     Dosage: UNK
     Route: 065

REACTIONS (4)
  - HYPOTENSION [None]
  - ABDOMINAL RIGIDITY [None]
  - RASH GENERALISED [None]
  - LOSS OF CONSCIOUSNESS [None]
